FAERS Safety Report 8423852-7 (Version None)
Quarter: 2012Q2

REPORT INFORMATION
  Report Type: 
  Country: None (occurrence: None)
  Receive Date: 20120608
  Receipt Date: 20110706
  Transmission Date: 20120825
  Serious: No
  Sender: FDA-Public Use
  Company Number: US-ASTRAZENECA-2011SE40497

PATIENT

DRUGS (9)
  1. SYNTHROID [Concomitant]
  2. CANDESARTAN CILEXETIL [Suspect]
     Route: 048
  3. CARBATROL [Concomitant]
  4. LOSARTAN [Concomitant]
  5. DIAZEPAM [Concomitant]
  6. ALPHAGAN [Concomitant]
  7. ADVAIR DISKU [Concomitant]
  8. LIPITOR [Concomitant]
  9. METHYLPREDNISOLONE [Concomitant]

REACTIONS (1)
  - ADVERSE DRUG REACTION [None]
